FAERS Safety Report 6535768-1 (Version None)
Quarter: 2010Q1

REPORT INFORMATION
  Report Type: 
  Country: None (occurrence: None)
  Receive Date: 20100113
  Receipt Date: 20100105
  Transmission Date: 20100710
  Serious: Yes (Hospitalization)
  Sender: FDA-Public Use
  Company Number: AT-ASTRAZENECA-2010SE00429

PATIENT
  Sex: Female
  Weight: 60 kg

DRUGS (7)
  1. SEROQUEL [Suspect]
     Indication: SCHIZOAFFECTIVE DISORDER
     Route: 048
     Dates: start: 19900101
  2. SEROQUEL [Suspect]
     Route: 048
  3. TRAZODONE HCL [Concomitant]
     Indication: SCHIZOAFFECTIVE DISORDER
     Dates: start: 19900101
  4. TRAZODONE HCL [Concomitant]
  5. MUTAN [Concomitant]
     Indication: SCHIZOAFFECTIVE DISORDER
     Dates: start: 19900101
  6. NOZINAN [Concomitant]
     Indication: SCHIZOAFFECTIVE DISORDER
     Dates: start: 19900101
  7. NOZINAN [Concomitant]

REACTIONS (9)
  - ALOPECIA [None]
  - BREAST SWELLING [None]
  - CONSTIPATION [None]
  - GENERALISED OEDEMA [None]
  - LIPID METABOLISM DISORDER [None]
  - MEGACOLON [None]
  - MENSTRUAL DISORDER [None]
  - THYROID DISORDER [None]
  - WEIGHT INCREASED [None]
